FAERS Safety Report 5015848-2 (Version None)
Quarter: 2006Q2

REPORT INFORMATION
  Report Type: 
  Country: None (occurrence: None)
  Receive Date: 20060526
  Receipt Date: 20060511
  Transmission Date: 20061013
  Serious: Yes (Hospitalization)
  Sender: FDA-Public Use
  Company Number: GBR-2006-0002241

PATIENT
  Age: 75 Year
  Sex: Female

DRUGS (8)
  1. OXYCODONE HCL [Suspect]
     Indication: SCIATICA
     Dosage: ORAL; 40 MG, DAILY, ORAL
     Route: 048
     Dates: start: 20060416, end: 20060417
  2. OXYCODONE HCL [Suspect]
     Indication: SCIATICA
     Dosage: ORAL; 40 MG, DAILY, ORAL
     Route: 048
     Dates: start: 20060417
  3. OXYNORM (OXYCODONE HYDROCHLORIDE) PROLONGED-RELEASE TABLET [Suspect]
     Indication: SCIATICA
     Dosage: ORAL
     Route: 048
     Dates: start: 20060416
  4. NEURONTIN [Concomitant]
  5. ACUTEL (QUINAPRIL) [Concomitant]
  6. SOLUPRED (PREDNISOLONE SODIUM SULFOBENZOATE) [Concomitant]
  7. ESOMEPRAZOLE (ESOMEPRAZOLE) [Concomitant]
  8. FORLAX (MACROGOL) [Concomitant]

REACTIONS (3)
  - DISORIENTATION [None]
  - NAUSEA [None]
  - SOMNOLENCE [None]
